FAERS Safety Report 12610774 (Version 2)
Quarter: 2016Q4

REPORT INFORMATION
  Report Type: Spontaneous
  Country: US (occurrence: US)
  Receive Date: 20160801
  Receipt Date: 20161003
  Transmission Date: 20170207
  Serious: No
  Sender: FDA-Public Use
  Company Number: US-PFIZER INC-2016332742

PATIENT
  Age: 72 Year
  Sex: Male
  Weight: 107.5 kg

DRUGS (3)
  1. METHYLPREDNISOLONE. [Suspect]
     Active Substance: METHYLPREDNISOLONE
     Indication: COUGH
     Dosage: TAPERED DOSE, TOOK 6 TABLETS THE FIRST DAY, 5 TABLETS THE SECOND DAY, AND SO ON
     Dates: start: 201606, end: 201606
  2. METHYLPREDNISOLONE. [Suspect]
     Active Substance: METHYLPREDNISOLONE
     Indication: NASAL CONGESTION
  3. HYCODAN [Suspect]
     Active Substance: HOMATROPINE METHYLBROMIDE\HYDROCODONE BITARTRATE
     Indication: COUGH
     Dosage: 2 DF, 2 TSPS PER DAY AS NEEDED
     Dates: start: 20160609, end: 20160612

REACTIONS (1)
  - Drug ineffective [Recovered/Resolved]
